FAERS Safety Report 5892230-7 (Version None)
Quarter: 2008Q3

REPORT INFORMATION
  Report Type: 
  Country: None (occurrence: None)
  Receive Date: 20080922
  Receipt Date: 20080913
  Transmission Date: 20090109
  Serious: Yes (Life-Threatening, Hospitalization)
  Sender: FDA-Public Use
  Company Number: FR-GENENTECH-268174

PATIENT
  Age: 75 Year
  Sex: Male

DRUGS (1)
  1. MABTHERA [Suspect]
     Indication: CONNECTIVE TISSUE DISORDER
     Dosage: 1000 MG, UNK
     Route: 042
     Dates: start: 20060101

REACTIONS (1)
  - TOXOPLASMOSIS [None]
